FAERS Safety Report 10787113 (Version 1)
Quarter: 2015Q1

REPORT INFORMATION
  Report Type: Spontaneous
  Country: US (occurrence: US)
  Receive Date: 20150211
  Receipt Date: 20150211
  Transmission Date: 20150721
  Serious: Yes (Hospitalization)
  Sender: FDA-Public Use
  Company Number: US-GILEAD-2014-0126949

PATIENT
  Age: 67 Year
  Sex: Female

DRUGS (13)
  1. LANTUS [Concomitant]
     Active Substance: INSULIN GLARGINE
  2. SOFOSBUVIR [Suspect]
     Active Substance: SOFOSBUVIR
     Dosage: UNK
     Route: 065
  3. INTERFERON NOS [Concomitant]
     Active Substance: INTERFERON
     Indication: CHRONIC HEPATITIS C
  4. NIFEDIPINE. [Concomitant]
     Active Substance: NIFEDIPINE
  5. METOLAZONE. [Concomitant]
     Active Substance: METOLAZONE
  6. RIBAVIRIN. [Suspect]
     Active Substance: RIBAVIRIN
     Indication: CHRONIC HEPATITIS C
     Dosage: 220 MG, QD
     Route: 065
  7. ASPIRIN 81 [Concomitant]
  8. PERCOCET [Concomitant]
     Active Substance: ACETAMINOPHEN\OXYCODONE HYDROCHLORIDE
  9. CALCIUM + VIT D [Concomitant]
     Active Substance: CALCIUM\VITAMIN D
  10. FUROSEMIDE. [Concomitant]
     Active Substance: FUROSEMIDE
  11. BACITRACIN. [Concomitant]
     Active Substance: BACITRACIN
  12. LOSARTAN [Concomitant]
     Active Substance: LOSARTAN
  13. ATORVASTATIN [Concomitant]
     Active Substance: ATORVASTATIN

REACTIONS (7)
  - Dizziness [Unknown]
  - Palpitations [Unknown]
  - Abdominal distension [Unknown]
  - Swelling [Unknown]
  - Anaemia [Unknown]
  - Fatigue [Unknown]
  - Dyspnoea exertional [Unknown]
